FAERS Safety Report 6540092-7 (Version None)
Quarter: 2010Q1

REPORT INFORMATION
  Report Type: 
  Country: None (occurrence: None)
  Receive Date: 20100115
  Receipt Date: 20100111
  Transmission Date: 20100710
  Serious: Yes (Death)
  Sender: FDA-Public Use
  Company Number: FR-PFIZER INC-2010003661

PATIENT
  Age: 50 Year
  Sex: Male

DRUGS (13)
  1. TAHOR [Suspect]
     Dosage: 10 MG, 1X/DAY
  2. FLECAINIDE ACETATE [Suspect]
     Indication: VENTRICULAR ARRHYTHMIA
     Dosage: 100 MG, 2X/DAY
     Route: 048
  3. APROVEL [Suspect]
     Dosage: 150 MG, 1X/DAY
     Dates: end: 20090914
  4. PROPRANOLOL [Suspect]
     Dosage: 40 MG, 2X/DAY
  5. EUPRESSYL [Suspect]
     Dosage: 60 MG, 2X/DAY
  6. CEFAZOLIN [Suspect]
     Dosage: 2 G, UNK
     Route: 042
  7. DIPRIVAN [Suspect]
     Dosage: 150 MG, UNK
     Route: 042
     Dates: start: 20090915
  8. SUFENTANIL [Suspect]
     Dosage: 10 UG, UNK
     Route: 042
     Dates: start: 20090915
  9. ATRACURIUM BESYLATE [Suspect]
     Dosage: 40 MG, UNK
     Route: 042
     Dates: start: 20090915
  10. DESFLURANE [Suspect]
     Dosage: UNK
     Route: 042
     Dates: start: 20090915
  11. ALLOPURINOL [Suspect]
     Dosage: 100 MG, 1X/DAY
  12. CINACALCET [Suspect]
     Dosage: 30 MG, 1X/DAY
  13. PANTOPRAZOLE [Suspect]
     Dosage: 20 MG, 1X/DAY

REACTIONS (2)
  - HYPOTENSION [None]
  - VENTRICULAR ARRHYTHMIA [None]
